FAERS Safety Report 6869906-8 (Version None)
Quarter: 2010Q3

REPORT INFORMATION
  Report Type: 
  Country: None (occurrence: None)
  Receive Date: 20100722
  Receipt Date: 20080909
  Transmission Date: 20110219
  Serious: No
  Sender: FDA-Public Use
  Company Number: US-PFIZER INC-2008075601

PATIENT
  Sex: Female
  Weight: 56.8 kg

DRUGS (3)
  1. CHANTIX [Suspect]
     Indication: SMOKING CESSATION THERAPY
     Route: 048
     Dates: start: 20080905
  2. LYRICA [Concomitant]
  3. MONTELUKAST SODIUM [Concomitant]

REACTIONS (3)
  - DIARRHOEA [None]
  - HYPOPHAGIA [None]
  - NAUSEA [None]
